FAERS Safety Report 7727607-8 (Version None)
Quarter: 2011Q3

REPORT INFORMATION
  Report Type: 
  Country: None (occurrence: None)
  Receive Date: 20110902
  Receipt Date: 20110822
  Transmission Date: 20111222
  Serious: Yes (Hospitalization)
  Sender: FDA-Public Use
  Company Number: US-NOVOPROD-334019

PATIENT
  Sex: Male
  Weight: 59 kg

DRUGS (7)
  1. LEVEMIR [Suspect]
     Indication: DIABETES MELLITUS
     Dosage: UNK
     Route: 058
  2. NOVOLOG [Suspect]
     Indication: DIABETES MELLITUS
     Dosage: UNK
     Route: 058
  3. AMARYL [Concomitant]
     Indication: PRODUCT USED FOR UNKNOWN INDICATION
  4. PRILOSEC [Concomitant]
     Indication: PRODUCT USED FOR UNKNOWN INDICATION
  5. LEVEMIR [Suspect]
     Dosage: 15 U, QD
     Route: 058
  6. NOVOLOG [Suspect]
     Dosage: SLIDING SCALE
     Route: 058
  7. LYRICA [Concomitant]
     Indication: NEURALGIA

REACTIONS (3)
  - BONE DISORDER [None]
  - OEDEMA PERIPHERAL [None]
  - PAIN IN EXTREMITY [None]
